FAERS Safety Report 4594882-0 (Version None)
Quarter: 2005Q1

REPORT INFORMATION
  Report Type: 
  Country: None (occurrence: None)
  Receive Date: 20050223
  Receipt Date: 20050210
  Transmission Date: 20050727
  Serious: Yes (Hospitalization, Other)
  Sender: FDA-Public Use
  Company Number: 2005028183

PATIENT
  Age: 37 Year
  Sex: Female

DRUGS (6)
  1. ZOLOFT [Suspect]
     Indication: POST-TRAUMATIC STRESS DISORDER
     Dosage: 200 MG (100 MG, 2 IN 1 D), ORAL
     Route: 048
  2. ANACIN (ACETYLSALICYLID ACID, CAFFEINE) [Suspect]
     Indication: ANALGESIC EFFECT
     Dosage: ORAL
     Route: 048
  3. IBUPROFEN [Suspect]
     Indication: ANALGESIC EFFECT
     Dosage: ORAL
     Route: 048
  4. HYDROXYZINE HCL [Concomitant]
  5. NOVALUZID (ALUMINIUM HYDROXIDE, MAGNESIUM CARBONATE, MAGNESIUM HYDROXI [Concomitant]
  6. ZOPICLONE (ZOPICLONE) [Concomitant]

REACTIONS (4)
  - DRUG INEFFECTIVE [None]
  - GASTRIC POLYPS [None]
  - GASTRIC ULCER [None]
  - VOMITING [None]
